FAERS Safety Report 12636725 (Version 2)
Quarter: 2016Q3

REPORT INFORMATION
  Report Type: Spontaneous
  Country: US (occurrence: US)
  Receive Date: 20160809
  Receipt Date: 20160809
  Transmission Date: 20161109
  Serious: Yes (Death)
  Sender: FDA-Public Use
  Company Number: US-SA-2016SA115553

PATIENT
  Age: 16 Month
  Sex: Female
  Weight: 8 kg

DRUGS (1)
  1. CEREZYME [Suspect]
     Active Substance: IMIGLUCERASE
     Indication: GAUCHER^S DISEASE TYPE II
     Dosage: DOSE:50 UNIT(S)/KILOGRAM BODYWEIGHT
     Route: 041
     Dates: start: 20151201, end: 20160609

REACTIONS (5)
  - Musculoskeletal stiffness [Fatal]
  - Tremor [Fatal]
  - Seizure [Fatal]
  - Respiratory failure [Fatal]
  - Stridor [Fatal]

NARRATIVE: CASE EVENT DATE: 20160609
